FAERS Safety Report 6442855-5 (Version None)
Quarter: 2009Q4

REPORT INFORMATION
  Report Type: 
  Country: None (occurrence: None)
  Receive Date: 20091113
  Receipt Date: 20091105
  Transmission Date: 20100525
  Serious: Yes (Hospitalization)
  Sender: FDA-Public Use
  Company Number: 2009US003790

PATIENT
  Sex: Female

DRUGS (3)
  1. VESICARE [Suspect]
     Indication: HYPERTONIC BLADDER
     Dosage: UID/QD,ORAL
     Route: 048
     Dates: start: 20091001
  2. DEPAKOTE [Concomitant]
  3. ATIVAN [Concomitant]

REACTIONS (4)
  - AGITATION [None]
  - ANXIETY [None]
  - CRYING [None]
  - TREMOR [None]
